FAERS Safety Report 7789139-0 (Version None)
Quarter: 2011Q3

REPORT INFORMATION
  Report Type: 
  Country: None (occurrence: None)
  Receive Date: 20110930
  Receipt Date: 20110712
  Transmission Date: 20111222
  Serious: Yes (Other)
  Sender: FDA-Public Use
  Company Number: US-BRACCO-006106

PATIENT
  Age: 38 Year
  Sex: Female
  Weight: 54.5 kg

DRUGS (8)
  1. MULTIHANCE [Suspect]
     Indication: MUSCULAR WEAKNESS
     Dosage: ADMINISTERED TO RIGHT ANTECUBITAL AREA
     Route: 042
     Dates: start: 20110407, end: 20110407
  2. MULTIHANCE [Suspect]
     Indication: CONVULSION
     Dosage: ADMINISTERED TO RIGHT ANTECUBITAL AREA
     Route: 042
     Dates: start: 20110407, end: 20110407
  3. PENICILLIN NOS [Concomitant]
  4. TALWIN [Concomitant]
  5. REBIF [Concomitant]
  6. ERYTHROMYCIN [Concomitant]
  7. SULFONAMIDES [Concomitant]
  8. MULTIHANCE [Suspect]
     Indication: NUCLEAR MAGNETIC RESONANCE IMAGING
     Dosage: ADMINISTERED TO RIGHT ANTECUBITAL AREA
     Route: 042
     Dates: start: 20110407, end: 20110407

REACTIONS (3)
  - PULSELESS ELECTRICAL ACTIVITY [None]
  - CYANOSIS [None]
  - LOSS OF CONSCIOUSNESS [None]
